FAERS Safety Report 25940406 (Version 1)
Quarter: 2025Q4

REPORT INFORMATION
  Report Type: Spontaneous
  Country: EU (occurrence: EU)
  Receive Date: 20251020
  Receipt Date: 20251020
  Transmission Date: 20260118
  Serious: Yes (Other)
  Sender: BAUSCH AND LOMB
  Company Number: None

PATIENT
  Age: 1 Month
  Sex: Female

DRUGS (2)
  1. PHENYLEPHRINE HYDROCHLORIDE [Suspect]
     Active Substance: PHENYLEPHRINE HYDROCHLORIDE
     Indication: Ophthalmological examination
     Dosage: 1 DROP X2, 10 MIN APART. NO INFORMATION IN THE REPORT ON WHETHER THE PREPARATION WAS DILUTED BEFORE
     Dates: start: 20250923, end: 20250923
  2. CYCLOPENTOLATE HYDROCHLORIDE [Suspect]
     Active Substance: CYCLOPENTOLATE HYDROCHLORIDE
     Indication: Ophthalmological examination
     Dosage: 1 DROP X2, 10 MIN APART. NO INFORMATION IN THE REPORT ON WHETHER THE PREPARATION WAS DILUTED BEFORE
     Dates: start: 20250923, end: 20250923

REACTIONS (3)
  - Apnoea [Recovering/Resolving]
  - Bradycardia [Recovering/Resolving]
  - Oxygen saturation decreased [Recovering/Resolving]

NARRATIVE: CASE EVENT DATE: 20250923
